FAERS Safety Report 21683044 (Version 1)
Quarter: 2022Q4

REPORT INFORMATION
  Report Type: Spontaneous
  Country: US (occurrence: US)
  Receive Date: 20221205
  Receipt Date: 20221205
  Transmission Date: 20230113
  Serious: No
  Sender: FDA-Public Use
  Company Number: US-BAYER-2022P023297

PATIENT
  Age: 39 Year
  Sex: Female
  Weight: 56.8 kg

DRUGS (4)
  1. ADEMPAS [Suspect]
     Active Substance: RIOCIGUAT
  2. EPOPROSTENOL SODIUM [Suspect]
     Active Substance: EPOPROSTENOL SODIUM
     Indication: Pulmonary hypertension
     Dosage: 2880 NG/KG (2N-2)
     Route: 042
  3. ELIQUIS [Concomitant]
     Active Substance: APIXABAN
  4. LETAIRIS [Concomitant]
     Active Substance: AMBRISENTAN

REACTIONS (3)
  - Illness [None]
  - Illness [None]
  - Inappropriate schedule of product administration [None]
